FAERS Safety Report 14640969 (Version 1)
Quarter: 2018Q1

REPORT INFORMATION
  Report Type: Report from Study
  Country: US (occurrence: US)
  Receive Date: 20180315
  Receipt Date: 20180315
  Transmission Date: 20180509
  Serious: Yes (Other)
  Sender: FDA-Public Use
  Company Number: US-B.I. PHARMACEUTICALS,INC./RIDGEFIELD-2018-BI-013246

PATIENT
  Age: 27 Year
  Sex: Female

DRUGS (2)
  1. BUPRENORPHINE. [Concomitant]
     Active Substance: BUPRENORPHINE
     Indication: PRODUCT USED FOR UNKNOWN INDICATION
     Route: 065
  2. CATAPRES [Suspect]
     Active Substance: CLONIDINE HYDROCHLORIDE
     Indication: ANALGESIC THERAPY
     Dosage: STRENGTH: 1.2 MCG/ML
     Route: 008

REACTIONS (2)
  - Hypotension [Unknown]
  - Foetal heart rate deceleration abnormality [Recovered/Resolved]
